FAERS Safety Report 15114389 (Version 1)
Quarter: 2018Q3

REPORT INFORMATION
  Report Type: Spontaneous
  Country: CA (occurrence: CA)
  Receive Date: 20180706
  Receipt Date: 20180706
  Transmission Date: 20181010
  Serious: Yes (Other)
  Sender: FDA-Public Use
  Company Number: CA-PFIZER INC-2018262118

PATIENT
  Age: 52 Year
  Sex: Female

DRUGS (2)
  1. IBRANCE [Suspect]
     Active Substance: PALBOCICLIB
     Dosage: 125 MG, CYCLIC (DAILY, 21 DAYS ON, 7 DAYS OFF. REPEAT CYCLE)
     Dates: start: 20180316
  2. FASLODEX [Concomitant]
     Active Substance: FULVESTRANT
     Dosage: 250 MG ON EACH BUTTOCK, CYCLIC (EVERY 28 DAYS)

REACTIONS (4)
  - Pain [Unknown]
  - Fatigue [Unknown]
  - Insomnia [Unknown]
  - Neuropathy peripheral [Unknown]
